FAERS Safety Report 8892174 (Version 1)
Quarter: 2012Q4

REPORT INFORMATION
  Report Type: Spontaneous
  Country: US (occurrence: None)
  Receive Date: 20121105
  Receipt Date: 20121105
  Transmission Date: 20130627
  Serious: Yes (Hospitalization)
  Sender: FDA-Public Use
  Company Number: None

PATIENT
  Age: 75 Year
  Sex: Female
  Weight: 81.7 kg

DRUGS (1)
  1. RIVAROXABAN [Suspect]
     Route: 048
     Dates: start: 20121030, end: 20121031

REACTIONS (1)
  - Pulmonary embolism [None]
